FAERS Safety Report 5714438-3 (Version None)
Quarter: 2008Q2

REPORT INFORMATION
  Report Type: 
  Country: None (occurrence: None)
  Receive Date: 20080423
  Receipt Date: 20070426
  Transmission Date: 20081010
  Serious: No
  Sender: FDA-Public Use
  Company Number: A0647016A

PATIENT
  Age: 80 Year
  Sex: Male

DRUGS (3)
  1. LEUKERAN [Suspect]
     Dosage: 2MG THREE TIMES PER DAY
     Route: 048
     Dates: start: 20061114, end: 20061121
  2. ASPIRIN [Concomitant]
  3. VITAMINS [Concomitant]

REACTIONS (1)
  - RASH [None]
